FAERS Safety Report 25113543 (Version 1)
Quarter: 2025Q1

REPORT INFORMATION
  Report Type: Spontaneous
  Country: US (occurrence: None)
  Receive Date: 20250322
  Receipt Date: 20250322
  Transmission Date: 20250409
  Serious: Yes (Disabling)
  Sender: FDA-CTU
  Company Number: None

PATIENT
  Age: 36 Year
  Sex: Male
  Weight: 63 kg

DRUGS (1)
  1. LEVAQUIN [Suspect]
     Active Substance: LEVOFLOXACIN
     Indication: Postoperative wound infection
     Dates: start: 20240301, end: 20240311

REACTIONS (5)
  - Synovial cyst [None]
  - Arthralgia [None]
  - Cartilage injury [None]
  - Cartilage injury [None]
  - Arthralgia [None]

NARRATIVE: CASE EVENT DATE: 20240612
